FAERS Safety Report 14663938 (Version 3)
Quarter: 2018Q2

REPORT INFORMATION
  Report Type: Spontaneous
  Country: US (occurrence: US)
  Receive Date: 20180321
  Receipt Date: 20180417
  Transmission Date: 20180711
  Serious: No
  Sender: FDA-Public Use
  Company Number: US-009507513-1803USA002680

PATIENT
  Age: 35 Year
  Sex: Female
  Weight: 62.59 kg

DRUGS (1)
  1. GANIRELIX ACETATE INJECTION [Suspect]
     Active Substance: GANIRELIX ACETATE
     Indication: INFERTILITY
     Dosage: 250 MICROGRAM, QD
     Route: 058
     Dates: start: 20180225, end: 20180301

REACTIONS (6)
  - Exposure via skin contact [Unknown]
  - Incorrect dose administered [Unknown]
  - Overdose [Unknown]
  - Product leakage [Unknown]
  - No adverse event [Unknown]
  - Needle issue [Recovered/Resolved]

NARRATIVE: CASE EVENT DATE: 20180227
